FAERS Safety Report 9484650 (Version 2)
Quarter: 2013Q3

REPORT INFORMATION
  Report Type: Report from Study
  Country: US (occurrence: US)
  Receive Date: 20130828
  Receipt Date: 20130920
  Transmission Date: 20140515
  Serious: Yes (Hospitalization)
  Sender: FDA-Public Use
  Company Number: US-ACTELION-A-NJ2013-87533

PATIENT
  Age: 59 Year
  Sex: Female

DRUGS (5)
  1. TRACLEER [Suspect]
     Indication: PULMONARY ARTERIAL HYPERTENSION
     Dosage: UNK
     Route: 048
  2. REMODULIN [Suspect]
     Dosage: UNK
     Route: 042
  3. SILDENAFIL [Concomitant]
     Indication: PULMONARY ARTERIAL HYPERTENSION
  4. COUMADIN [Concomitant]
  5. OXYGEN [Concomitant]

REACTIONS (9)
  - Catheter placement [Recovering/Resolving]
  - Shoulder operation [Recovering/Resolving]
  - Presyncope [Recovering/Resolving]
  - Walking distance test abnormal [Unknown]
  - Dyspnoea [Recovering/Resolving]
  - Sweat gland disorder [Unknown]
  - Feeling hot [Unknown]
  - Visual impairment [Unknown]
  - Neuropathy peripheral [Recovering/Resolving]
